FAERS Safety Report 6569411-2 (Version None)
Quarter: 2010Q1

REPORT INFORMATION
  Report Type: 
  Country: None (occurrence: None)
  Receive Date: 20100204
  Receipt Date: 20100128
  Transmission Date: 20100710
  Serious: Yes (Hospitalization)
  Sender: FDA-Public Use
  Company Number: FR-BRISTOL-MYERS SQUIBB COMPANY-14956940

PATIENT
  Age: 73 Year
  Sex: Male

DRUGS (8)
  1. COUMADIN [Suspect]
     Indication: ATRIAL FIBRILLATION
     Route: 048
     Dates: start: 20070101, end: 20090606
  2. NISISCO [Concomitant]
     Dosage: 1DF=160MG/25MG
  3. ZANIDIP [Concomitant]
     Dosage: COATED TAB
  4. HYPERIUM [Concomitant]
     Dosage: TAB
     Dates: start: 19990101
  5. LASILIX [Concomitant]
     Indication: HYPERTENSION
     Dosage: TAB
     Dates: start: 19990101
  6. GLUCOVANCE [Concomitant]
     Dosage: 1DF=500MG/5MG COATED TABLET
  7. NOVONORM [Concomitant]
     Dosage: TAB
  8. BYETTA [Concomitant]
     Indication: TYPE 2 DIABETES MELLITUS
     Route: 058
     Dates: start: 19990101

REACTIONS (3)
  - MELAENA [None]
  - OESOPHAGITIS [None]
  - VOMITING [None]
